FAERS Safety Report 8384577-X (Version None)
Quarter: 2012Q2

REPORT INFORMATION
  Report Type: 
  Country: None (occurrence: None)
  Receive Date: 20120524
  Receipt Date: 20120521
  Transmission Date: 20120825
  Serious: Yes (Death, Other)
  Sender: FDA-Public Use
  Company Number: GB-JNJFOC-20120510675

PATIENT

DRUGS (8)
  1. ALL OTHER THERAPEUTIC PRODUCTS [Suspect]
     Indication: ARTHRALGIA
     Dosage: TWO IBUPROFEN 200 MG/PARACETAMOL 500 MG CAPSULES
     Route: 048
  2. PLACEBO [Suspect]
     Indication: ARTHRALGIA
     Dosage: ONE IBUPROFEN 200 MG/PARACETAMOL  500 MG CAPSULE PLUS ONE PLACEBO CAPSULE
     Route: 048
  3. IBUPROFEN [Suspect]
     Route: 048
  4. IBUPROFEN [Suspect]
     Route: 048
  5. IBUPROFEN [Suspect]
     Indication: ARTHRALGIA
     Route: 048
  6. ACETAMINOPHEN [Suspect]
     Route: 048
  7. ACETAMINOPHEN [Suspect]
     Route: 048
  8. ACETAMINOPHEN [Suspect]
     Indication: ARTHRALGIA
     Route: 048

REACTIONS (4)
  - RENAL IMPAIRMENT [None]
  - HAEMOGLOBIN DECREASED [None]
  - ANGINA PECTORIS [None]
  - AORTIC ANEURYSM RUPTURE [None]
